FAERS Safety Report 7380900-3 (Version None)
Quarter: 2011Q1

REPORT INFORMATION
  Report Type: 
  Country: None (occurrence: None)
  Receive Date: 20110329
  Receipt Date: 20110316
  Transmission Date: 20110831
  Serious: Yes (Hospitalization)
  Sender: FDA-Public Use
  Company Number: PHHY2011TW13972

PATIENT
  Sex: Female

DRUGS (1)
  1. ACLASTA [Suspect]
     Indication: OSTEOPOROSIS POSTMENOPAUSAL
     Dosage: 5 MG/100 C.C/ ONCE PER YEAR
     Route: 041
     Dates: start: 20101006

REACTIONS (2)
  - TOOTH ABSCESS [None]
  - CEMENTOBLASTOMA [None]
